FAERS Safety Report 10725651 (Version 1)
Quarter: 2015Q1

REPORT INFORMATION
  Report Type: Spontaneous
  Country: JP (occurrence: JP)
  Receive Date: 20150121
  Receipt Date: 20150121
  Transmission Date: 20150721
  Serious: Yes (Other)
  Sender: FDA-Public Use
  Company Number: JP-CIPLA LTD.-2015JP00544

PATIENT

DRUGS (2)
  1. SERTRALINE [Suspect]
     Active Substance: SERTRALINE HYDROCHLORIDE
     Indication: DEPRESSION
     Dosage: 50 MG, QD
  2. SPINAL ANESTHESIA TRAY [Suspect]
     Active Substance: DEVICE
     Indication: CYSTITIS INTERSTITIAL

REACTIONS (5)
  - Job dissatisfaction [Unknown]
  - Head discomfort [Unknown]
  - Nausea [Unknown]
  - Cystitis interstitial [Recovered/Resolved]
  - Post lumbar puncture syndrome [Unknown]
